FAERS Safety Report 4728729-6 (Version None)
Quarter: 2005Q3

REPORT INFORMATION
  Report Type: 
  Country: None (occurrence: None)
  Receive Date: 20050727
  Receipt Date: 20050714
  Transmission Date: 20060218
  Serious: Yes (Hospitalization)
  Sender: FDA-Public Use
  Company Number: APP200500351

PATIENT
  Age: 57 Year
  Sex: Female
  Weight: 75.9321 kg

DRUGS (8)
  1. FLUOROURACIL INJ [Suspect]
     Indication: BILIARY NEOPLASM
     Dosage: 375 MG/M2 (375 MG/M2, 1 IN 1 D), INTRAVENOUS
     Route: 042
     Dates: start: 20050606, end: 20050610
  2. LEUCOVORIN CALCIUM [Suspect]
     Indication: BILIARY NEOPLASM
     Dosage: 25 MG/M2 (25 MG/M2, 1 IN 1 D), INTRAVENOUS
     Route: 042
     Dates: start: 20050606, end: 20050610
  3. FERROUS SULFATE TAB [Concomitant]
  4. PERCOCET [Concomitant]
  5. COLACE (DOCUSATE SODIUM) [Concomitant]
  6. COMPAZINE [Concomitant]
  7. ATIVAN [Concomitant]
  8. BENADRAL/MAALOX/XYLOCAINE [Concomitant]

REACTIONS (2)
  - FEBRILE NEUTROPENIA [None]
  - WHITE BLOOD CELL COUNT DECREASED [None]
